FAERS Safety Report 24573467 (Version 1)
Quarter: 2024Q4

REPORT INFORMATION
  Report Type: Spontaneous
  Country: FR (occurrence: FR)
  Receive Date: 20241102
  Receipt Date: 20241102
  Transmission Date: 20250114
  Serious: Yes (Other)
  Sender: AUROBINDO
  Company Number: FR-AFSSAPS-PV2023000354

PATIENT
  Age: 18 Year
  Sex: Male
  Weight: 65 kg

DRUGS (1)
  1. FINASTERIDE [Suspect]
     Active Substance: FINASTERIDE
     Indication: Alopecia
     Dosage: 1 MILLIGRAM, ONCE A DAY
     Route: 048
     Dates: start: 20230331, end: 20230401

REACTIONS (6)
  - Erectile dysfunction [Recovering/Resolving]
  - Penile pain [Not Recovered/Not Resolved]
  - Insomnia [Recovering/Resolving]
  - Dry eye [Recovering/Resolving]
  - Semen liquefaction [Recovering/Resolving]
  - Brain fog [Recovering/Resolving]

NARRATIVE: CASE EVENT DATE: 20230331
